FAERS Safety Report 5419819-3 (Version None)
Quarter: 2007Q3

REPORT INFORMATION
  Report Type: 
  Country: None (occurrence: None)
  Receive Date: 20070820
  Receipt Date: 20070814
  Transmission Date: 20080115
  Serious: Yes (Hospitalization)
  Sender: FDA-Public Use
  Company Number: DE-ASTRAZENECA-2007PK01730

PATIENT
  Age: 60 Year
  Sex: Female

DRUGS (2)
  1. NAROPIN [Suspect]
  2. MERONEM [Suspect]

REACTIONS (1)
  - HYPERSENSITIVITY [None]
